FAERS Safety Report 26021827 (Version 1)
Quarter: 2025Q4

REPORT INFORMATION
  Report Type: Spontaneous
  Country: US (occurrence: None)
  Receive Date: 20251110
  Receipt Date: 20251110
  Transmission Date: 20260118
  Serious: No
  Sender: FDA-CTU
  Company Number: None

PATIENT
  Age: 52 Year
  Sex: Male

DRUGS (1)
  1. XTANDI [Suspect]
     Active Substance: ENZALUTAMIDE
     Dosage: FREQUENCY : DAILY;?
     Route: 048

REACTIONS (3)
  - Pain [None]
  - Quality of life decreased [None]
  - Therapy non-responder [None]

NARRATIVE: CASE EVENT DATE: 20251110
